FAERS Safety Report 8840186 (Version 1)
Quarter: 2012Q4

REPORT INFORMATION
  Report Type: Report from Study
  Country: DE (occurrence: DE)
  Receive Date: 20121015
  Receipt Date: 20121015
  Transmission Date: 20130627
  Serious: Yes (Hospitalization)
  Sender: FDA-Public Use
  Company Number: DE-TEVA-362663GER

PATIENT
  Sex: Female

DRUGS (12)
  1. DOXORUBICIN [Suspect]
     Indication: B-CELL LYMPHOMA
     Route: 042
     Dates: start: 20120425
  2. DOXORUBICIN [Suspect]
     Indication: B-CELL LYMPHOMA
     Route: 042
     Dates: start: 20120425
  3. PREDNISONE [Suspect]
     Indication: B-CELL LYMPHOMA
     Dosage: 100 Milligram Daily;
     Route: 048
     Dates: start: 20120425
  4. RITUXIMAB [Suspect]
     Indication: B-CELL LYMPHOMA
     Route: 042
     Dates: start: 20120424
  5. CYCLOPHOSPHAMIDE [Suspect]
     Indication: B-CELL LYMPHOMA
     Route: 042
     Dates: start: 20120425
  6. VINCRISTINE [Suspect]
     Indication: B-CELL LYMPHOMA
     Route: 042
     Dates: start: 20120425
  7. PEGFILGRASTIM [Suspect]
     Indication: B-CELL LYMPHOMA
     Dosage: 6 Milligram Daily;
     Route: 058
     Dates: start: 20120428
  8. MIRTAZAPINE [Concomitant]
     Indication: INSOMNIA
     Dosage: 15 Milligram Daily;
     Route: 048
  9. RAMIPRIL [Concomitant]
     Indication: HYPERTENSION
     Dosage: 2.5 Milligram Daily;
     Route: 048
  10. BISOPROLOL [Concomitant]
     Indication: HYPERTENSION
     Dosage: 2.5 Milligram Daily;
     Route: 048
  11. BISOPROLOL [Concomitant]
     Route: 048
  12. SIMVASTATIN [Concomitant]
     Indication: HYPERLIPIDAEMIA
     Dosage: 40 Milligram Daily;
     Route: 048

REACTIONS (4)
  - Leukopenia [Recovered/Resolved]
  - Anaemia [Unknown]
  - Dyspnoea [Unknown]
  - Back pain [Recovered/Resolved]
